FAERS Safety Report 19394681 (Version 1)
Quarter: 2021Q2

REPORT INFORMATION
  Report Type: Spontaneous
  Country: US (occurrence: US)
  Receive Date: 20210609
  Receipt Date: 20210609
  Transmission Date: 20210717
  Serious: No
  Sender: FDA-Public Use
  Company Number: None

PATIENT
  Age: 83 Year
  Sex: Male

DRUGS (1)
  1. NAPROXEN (NAPROXEN 500MG TAB) [Suspect]
     Active Substance: NAPROXEN
     Indication: PAIN
     Route: 048
     Dates: start: 19981013, end: 20210402

REACTIONS (2)
  - Gastric haemorrhage [None]
  - Gastric ulcer [None]

NARRATIVE: CASE EVENT DATE: 20210402
